FAERS Safety Report 4652525-1 (Version None)
Quarter: 2005Q2

REPORT INFORMATION
  Report Type: 
  Country: None (occurrence: None)
  Receive Date: 20050502
  Receipt Date: 20050421
  Transmission Date: 20051028
  Serious: Yes (Death)
  Sender: FDA-Public Use
  Company Number: 20050022USST

PATIENT
  Age: 73 Year
  Sex: Male

DRUGS (5)
  1. NATULAN (PROCARBAZINE HYDROCHLORIDE) CAPSULES [Suspect]
     Indication: HODGKIN'S DISEASE
     Dosage: PO
     Route: 048
     Dates: start: 20041206, end: 20041213
  2. ADRIAMYCIN, ENDOXAN AND ETOPOSIDE [Suspect]
     Indication: HODGKIN'S DISEASE
     Dosage: DAY 1
     Dates: start: 20041206
  3. PREDNISONE [Suspect]
     Indication: HODGKIN'S DISEASE
     Dosage: DAY 1 - DAY 14
     Dates: start: 20041206
  4. BLEOMYCIN [Suspect]
     Indication: HODGKIN'S DISEASE
     Dosage: DAY 7
     Dates: start: 20041213
  5. GRANOCYTE [Suspect]
     Dates: start: 20041221, end: 20041223

REACTIONS (9)
  - CYTOMEGALOVIRUS ANTIGEN POSITIVE [None]
  - EPSTEIN-BARR VIRUS INFECTION [None]
  - LUNG DISORDER [None]
  - NEUTROPENIA [None]
  - PNEUMOCYSTIS JIROVECI PNEUMONIA [None]
  - PROCTITIS [None]
  - PULMONARY FIBROSIS [None]
  - SEPSIS [None]
  - THROMBOCYTOPENIA [None]
